FAERS Safety Report 9601779 (Version 2)
Quarter: 2013Q4

REPORT INFORMATION
  Report Type: Spontaneous
  Country: US (occurrence: US)
  Receive Date: 20131007
  Receipt Date: 20131028
  Transmission Date: 20140711
  Serious: Yes (Life-Threatening, Hospitalization)
  Sender: FDA-Public Use
  Company Number: US-BAYER-2013-120543

PATIENT
  Age: 25 Year
  Sex: Female

DRUGS (14)
  1. YAZ [Suspect]
     Dosage: UNK
  2. YASMIN [Suspect]
     Dosage: UNK
  3. OCELLA [Suspect]
     Dosage: UNK
  4. TOPIRAMATE [Concomitant]
     Dosage: 100 MG, TK (INTERPRETED AS TAKE)1 T (INTERPRETED AS TABLET) QD
     Route: 048
     Dates: start: 20100329
  5. OXYCODONE/APAP [Concomitant]
     Dosage: 7.5/325 MG, TK 1-2 TS Q 4-6 PRN (AS AS NEEDED)
     Route: 048
     Dates: start: 20100329
  6. PROMETHAZINE [Concomitant]
     Indication: NAUSEA
     Dosage: 25 MG, TK 1 T Q 6 H PRN
     Route: 048
     Dates: start: 20100329
  7. LISINOPRIL HYDROCHLORTHIAZID [Concomitant]
     Dosage: 20/12.5 MG, TK 1 T QAM (AS MORNING)
     Route: 048
     Dates: start: 20100411
  8. CITALOPRAM [Concomitant]
     Dosage: 20 MG, TK 1 T QD
     Route: 048
     Dates: start: 20100411
  9. CELEXA [Concomitant]
     Dosage: 20 MG, TK 1 T QD
     Route: 048
     Dates: start: 20100621
  10. LISINOPRIL [Concomitant]
     Indication: HYPERTENSION
     Dosage: 20 MG DAILY
     Route: 048
     Dates: start: 20100621
  11. TORADOL [Concomitant]
     Dosage: UNK
  12. ZOFRAN [Concomitant]
     Dosage: UNK
  13. MORPHINE [Concomitant]
     Dosage: UNK
  14. PRILOSEC [Concomitant]
     Dosage: 40 MG, DAILY
     Route: 048

REACTIONS (9)
  - Pulmonary embolism [None]
  - Pulmonary embolism [None]
  - Injury [None]
  - Pain [None]
  - Anxiety [None]
  - Anhedonia [None]
  - Fear of disease [None]
  - Emotional distress [None]
  - Deep vein thrombosis [None]
